FAERS Safety Report 4503004-3 (Version None)
Quarter: 2004Q4

REPORT INFORMATION
  Report Type: 
  Country: None (occurrence: None)
  Receive Date: 20041112
  Receipt Date: 20041105
  Transmission Date: 20050328
  Serious: Yes (Hospitalization)
  Sender: FDA-Public Use
  Company Number: 001-0981-996129

PATIENT
  Age: 67 Year
  Sex: Female
  Weight: 100.0181 kg

DRUGS (9)
  1. ATORVASTATIN [Suspect]
     Indication: CORONARY ARTERY DISEASE
     Dosage: 10 MG, (1 IN 1 D), ORAL
     Route: 048
     Dates: start: 19990621
  2. GLIMEPIRIDE [Concomitant]
  3. ACETYLSALICYLIC ACID [Concomitant]
  4. DOXAZOSIN MESYLATE [Concomitant]
  5. MULTIVITAMINS (ASCORBIC ACID, ERGOCALCIFEROL, FOLIC ACID, NICOTINAMIDE [Concomitant]
  6. FUROSEMIDE [Concomitant]
  7. CANDESARTAN [Concomitant]
  8. NITROGLYCERIN [Concomitant]
  9. ACEMETACIN [Concomitant]

REACTIONS (5)
  - ARTHRALGIA [None]
  - COLON CANCER [None]
  - DYSPNOEA [None]
  - HAEMOGLOBIN DECREASED [None]
  - PAIN IN EXTREMITY [None]
